FAERS Safety Report 12156497 (Version 1)
Quarter: 2016Q1

REPORT INFORMATION
  Report Type: Spontaneous
  Country: US (occurrence: US)
  Receive Date: 20160307
  Receipt Date: 20160307
  Transmission Date: 20160526
  Serious: No
  Sender: FDA-Public Use
  Company Number: US-BAYER-2016-038232

PATIENT
  Age: 93 Year
  Sex: Female

DRUGS (2)
  1. MIRALAX [Suspect]
     Active Substance: POLYETHYLENE GLYCOL 3350
     Indication: CONSTIPATION
     Dosage: 1 DF, BID
     Dates: end: 201602
  2. NORPACE [Concomitant]
     Active Substance: DISOPYRAMIDE PHOSPHATE

REACTIONS (2)
  - Product use issue [None]
  - Drug ineffective [None]
